FAERS Safety Report 15138561 (Version 1)
Quarter: 2018Q3

REPORT INFORMATION
  Report Type: Report from Study
  Country: DE (occurrence: DE)
  Receive Date: 20180713
  Receipt Date: 20180713
  Transmission Date: 20181010
  Serious: Yes (Hospitalization, Other)
  Sender: FDA-Public Use
  Company Number: DE-TEVA-2018-DE-924975

PATIENT
  Age: 56 Year
  Sex: Male
  Weight: 96.8 kg

DRUGS (7)
  1. TRETINOIN. [Concomitant]
     Active Substance: TRETINOIN
     Dosage: 90 MILLIGRAM DAILY; 90 MG, DAILY
     Dates: start: 20170808, end: 20170810
  2. CYTARABIN [Suspect]
     Active Substance: CYTARABINE
     Indication: ACUTE MYELOID LEUKAEMIA
     Dosage: 214 MILLIGRAM DAILY; DAILY DOSE: 214 MG MILLIGRAM(S) EVERY DAY
     Route: 065
     Dates: start: 20170803, end: 20170807
  3. GEMTUZUMAB OZOGAMICIN [Suspect]
     Active Substance: GEMTUZUMAB OZOGAMICIN
     Indication: ACUTE MYELOID LEUKAEMIA
     Dosage: 6.42 MILLIGRAM DAILY; DAILY DOSE: 6.42 MG MILLIGRAM(S) EVERY DAY
     Route: 065
     Dates: start: 20170803, end: 20170803
  4. GEMTUZUMAB [Suspect]
     Active Substance: GEMTUZUMAB OZOGAMICIN
     Dosage: 6.42 MILLIGRAM DAILY; 6.42 MG, DAILY
     Dates: start: 20170803, end: 20170803
  5. IDARUBICIN [Suspect]
     Active Substance: IDARUBICIN
     Indication: ACUTE MYELOID LEUKAEMIA
     Dosage: 21.4 MILLIGRAM DAILY; DAILY DOSE: 21.4 MG MILLIGRAM(S) EVERY DAY
     Route: 065
     Dates: start: 20170803, end: 20170805
  6. ETOPOSIDE. [Suspect]
     Active Substance: ETOPOSIDE
     Indication: ACUTE MYELOID LEUKAEMIA
     Dosage: 214 MILLIGRAM DAILY; DAILY DOSE: 214 MG MILLIGRAM(S) EVERY DAY
     Route: 065
     Dates: start: 20170803, end: 20170805
  7. TRETINOIN. [Concomitant]
     Active Substance: TRETINOIN
     Dosage: 30 MILLIGRAM DAILY; 30 MG, DAILY
     Dates: start: 20170811, end: 20170823

REACTIONS (4)
  - Diarrhoea [Recovered/Resolved]
  - Clostridium difficile infection [Recovered/Resolved]
  - Nausea [Recovered/Resolved]
  - Vomiting [Recovered/Resolved]

NARRATIVE: CASE EVENT DATE: 20170904
